FAERS Safety Report 23695429 (Version 1)
Quarter: 2024Q2

REPORT INFORMATION
  Report Type: Spontaneous
  Country: US (occurrence: US)
  Receive Date: 20240402
  Receipt Date: 20240402
  Transmission Date: 20240715
  Serious: No
  Sender: FDA-Public Use
  Company Number: US-TEVA-VS-3165197

PATIENT
  Age: 56 Year
  Sex: Female
  Weight: 81.65 kg

DRUGS (1)
  1. AJOVY [Suspect]
     Active Substance: FREMANEZUMAB-VFRM
     Route: 065

REACTIONS (11)
  - Aspartate aminotransferase abnormal [Unknown]
  - Diplopia [Unknown]
  - Stress [Unknown]
  - Vision blurred [Unknown]
  - Motion sickness [Unknown]
  - Walking aid user [Unknown]
  - Anaesthetic complication [Unknown]
  - Migraine [Unknown]
  - Reading disorder [Unknown]
  - Inadequate analgesia [Unknown]
  - Analgesic therapy [Unknown]
